FAERS Safety Report 18936026 (Version 2)
Quarter: 2021Q2

REPORT INFORMATION
  Report Type: Report from Study
  Country: US (occurrence: US)
  Receive Date: 20210224
  Receipt Date: 20210608
  Transmission Date: 20210717
  Serious: No
  Sender: FDA-Public Use
  Company Number: US-TEVA-2021-US-1875562

PATIENT
  Age: 73 Year
  Sex: Female

DRUGS (32)
  1. AUSTEDO [Suspect]
     Active Substance: DEUTETRABENAZINE
     Route: 048
     Dates: start: 20210427
  2. PROMETHASINE HCL ORAL TABLET 25 MG [Concomitant]
     Route: 048
  3. LATANOPROST. [Concomitant]
     Active Substance: LATANOPROST
     Route: 065
  4. D3?50 ORAL CAPSULE 125 MG (50000 UT) [Concomitant]
     Route: 048
  5. D3 HIGHT POTENCY ORAL CAPSULE 50 MCG (2000 UT) [Concomitant]
     Route: 048
  6. VITAMIN B12 [Concomitant]
     Active Substance: CYANOCOBALAMIN
     Route: 048
  7. MAGNESIUM [Concomitant]
     Active Substance: MAGNESIUM
     Route: 048
  8. RISPERIDONE. [Concomitant]
     Active Substance: RISPERIDONE
     Route: 048
  9. PROBIOTIC ACIDOPHILUS [Concomitant]
     Active Substance: LACTOBACILLUS ACIDOPHILUS
     Route: 048
  10. ERY?TAB ORAL TABLET DELAYED RELEASE 250 MG [Concomitant]
     Route: 048
  11. BENADRYL ALLERGY ORAL CAPSULES 25 MG [Concomitant]
     Route: 048
  12. AMLODIPINE BESYLATE. [Concomitant]
     Active Substance: AMLODIPINE BESYLATE
     Route: 048
  13. PANTOPRAZOLE SODIUM ORAL PACKET 40 MG [Concomitant]
     Route: 048
  14. CETIRIZINE [Concomitant]
     Active Substance: CETIRIZINE HYDROCHLORIDE
     Route: 048
  15. OMEGA [Concomitant]
     Dosage: 3?6?9
     Route: 048
  16. CALCIUM LACTATE ORAL TABLET 750 MG [Concomitant]
     Route: 048
  17. LEVOTHYROXINE SODIUM ORAL TABLET 112 MCG [Concomitant]
     Route: 048
  18. STOOL SOFTENER ORAL CAPSULE 100 MG [Concomitant]
     Route: 048
  19. SOLIFENACIN SUCCINATE ORAL TABLET 6 MG [Concomitant]
     Route: 048
  20. MIRALAX ORAL POWDER 17 GR [Concomitant]
     Route: 048
  21. AUSTEDO [Suspect]
     Active Substance: DEUTETRABENAZINE
     Route: 048
  22. TRANSDERM SCOP (1.5 MG) TRANSDERMAL PATCH 72H 1 MCG/3DYS [Concomitant]
     Route: 062
  23. ONDANSETRON ORAL TABLET DISINTEGRATING 8MG [Concomitant]
     Route: 048
  24. MYRBETRIQ ORAL TABLET EXTENDED RELEASE 24 HOUR 25 MG [Concomitant]
     Route: 048
  25. TRAZODONE [Concomitant]
     Active Substance: TRAZODONE HYDROCHLORIDE
     Route: 048
  26. POLYETHYLENE GLYCOL 3350. [Concomitant]
     Active Substance: POLYETHYLENE GLYCOL 3350
     Dosage: 17 GM/SCOOP
     Route: 048
  27. AUSTEDO [Suspect]
     Active Substance: DEUTETRABENAZINE
     Indication: TARDIVE DYSKINESIA
     Dosage: 24 MILLIGRAM DAILY;
     Route: 048
  28. C 1000 ORAL TABLET 1000 MG [Concomitant]
     Route: 048
  29. ZENPEP [Concomitant]
     Active Substance: PANCRELIPASE AMYLASE\PANCRELIPASE LIPASE\PANCRELIPASE PROTEASE
     Route: 048
  30. OMEPRAZOLE ORAL CAPSULE DELAYED RELEASE 40 MG [Concomitant]
     Route: 048
  31. SIMVASTATIN. [Concomitant]
     Active Substance: SIMVASTATIN
     Route: 048
  32. ASPIRIN 81 [Concomitant]
     Active Substance: ASPIRIN
     Route: 065

REACTIONS (5)
  - Nausea [Unknown]
  - Diarrhoea [Not Recovered/Not Resolved]
  - Constipation [Unknown]
  - Appetite disorder [Unknown]
  - Abdominal distension [Unknown]
